FAERS Safety Report 23809498 (Version 4)
Quarter: 2024Q2

REPORT INFORMATION
  Report Type: Report from Study
  Country: MX (occurrence: MX)
  Receive Date: 20240502
  Receipt Date: 20240621
  Transmission Date: 20240716
  Serious: Yes (Life-Threatening)
  Sender: FDA-Public Use
  Company Number: MX-AstraZeneca-2024A078697

PATIENT
  Age: 45 Day
  Sex: Male
  Weight: 4.6 kg

DRUGS (4)
  1. SYNAGIS [Suspect]
     Active Substance: PALIVIZUMAB
     Indication: Respiratory syncytial virus bronchiolitis
     Dosage: 50 MG/0.5 ML?0.3 ML MONTHLY
     Route: 030
     Dates: start: 20240327, end: 20240327
  2. SYNAGIS [Suspect]
     Active Substance: PALIVIZUMAB
     Dosage: 50 MG/0.5 ML MONTHLY
     Route: 030
     Dates: start: 20240426, end: 20240426
  3. SYNAGIS [Suspect]
     Active Substance: PALIVIZUMAB
     Dosage: MONTHLY
     Route: 030
     Dates: start: 20240531
  4. ACETAMINOPHEN [Concomitant]
     Active Substance: ACETAMINOPHEN
     Indication: Product used for unknown indication

REACTIONS (4)
  - Discomfort [Recovered/Resolved]
  - Pain in extremity [Recovered/Resolved]
  - Dyspnoea [Recovered/Resolved]
  - Peripheral swelling [Recovered/Resolved]

NARRATIVE: CASE EVENT DATE: 20240327
